FAERS Safety Report 5849540-9 (Version None)
Quarter: 2008Q3

REPORT INFORMATION
  Report Type: 
  Country: None (occurrence: None)
  Receive Date: 20080819
  Receipt Date: 20080812
  Transmission Date: 20090109
  Serious: Yes (Life-Threatening)
  Sender: FDA-Public Use
  Company Number: B0533584A

PATIENT
  Age: 82 Year
  Sex: Female

DRUGS (3)
  1. REQUIP [Suspect]
     Indication: PARKINSON'S DISEASE
     Dosage: .5MG THREE TIMES PER DAY
     Route: 048
     Dates: start: 20050421, end: 20050505
  2. CAVINTON [Suspect]
     Indication: ARTERIOSCLEROSIS
     Dosage: 5MG THREE TIMES PER DAY
     Route: 048
     Dates: end: 20080507
  3. MOTILIUM [Suspect]
     Indication: NAUSEA
     Dosage: 10MG THREE TIMES PER DAY
     Route: 048
     Dates: start: 20020101, end: 20050505

REACTIONS (4)
  - CARDIAC FIBRILLATION [None]
  - ELECTROLYTE IMBALANCE [None]
  - LOSS OF CONSCIOUSNESS [None]
  - TACHYCARDIA [None]
